FAERS Safety Report 13088185 (Version 1)
Quarter: 2017Q1

REPORT INFORMATION
  Report Type: Spontaneous
  Country: US (occurrence: US)
  Receive Date: 20170103
  Receipt Date: 20170103
  Transmission Date: 20170428
  Serious: Yes (Disabling, Other)
  Sender: FDA-Public Use
  Company Number: None

PATIENT
  Age: 31 Year
  Sex: Male
  Weight: 78.75 kg

DRUGS (6)
  1. VYVANSE [Concomitant]
     Active Substance: LISDEXAMFETAMINE DIMESYLATE
  2. AMPHETAMINE ASPARTATE MONOHYDRATE [Concomitant]
  3. AMPHETAMINE SULFATE EXTENDED-RELEASE [Concomitant]
  4. DEXTROAMP-AMPHET ER [Suspect]
     Active Substance: AMPHETAMINE ASPARTATE\DEXTROAMPHETAMINE SACCHARATE
     Indication: ATTENTION DEFICIT/HYPERACTIVITY DISORDER
     Dosage: ?          QUANTITY:90 CAPSULE(S);?
     Route: 048
     Dates: start: 20161215, end: 20170102
  5. DEXTROAMPHETAMINE SULFATE. [Concomitant]
     Active Substance: DEXTROAMPHETAMINE SULFATE
  6. DEXTROAMPHETAMINE SACCHARATE [Concomitant]
     Active Substance: DEXTROAMPHETAMINE SACCHARATE

REACTIONS (15)
  - Restlessness [None]
  - Vision blurred [None]
  - Influenza like illness [None]
  - Diarrhoea [None]
  - Nausea [None]
  - Anxiety [None]
  - Agitation [None]
  - Sleep disorder [None]
  - Product quality issue [None]
  - Depression [None]
  - Asthenia [None]
  - Abdominal pain upper [None]
  - Malaise [None]
  - Irritability [None]
  - Condition aggravated [None]

NARRATIVE: CASE EVENT DATE: 20170102
